FAERS Safety Report 10055403 (Version 1)
Quarter: 2014Q2

REPORT INFORMATION
  Report Type: Spontaneous
  Country: US (occurrence: US)
  Receive Date: 20140403
  Receipt Date: 20140403
  Transmission Date: 20141212
  Serious: No
  Sender: FDA-Public Use
  Company Number: US-BIOGENIDEC-2014BI029792

PATIENT
  Age: 44 Year
  Sex: Female
  Weight: 93 kg

DRUGS (25)
  1. AVONEX [Suspect]
     Indication: RELAPSING-REMITTING MULTIPLE SCLEROSIS
     Route: 030
     Dates: start: 201112
  2. AVONEX [Suspect]
     Indication: RELAPSING-REMITTING MULTIPLE SCLEROSIS
     Route: 030
     Dates: start: 20120205
  3. SYMMETREL [Concomitant]
  4. LYRICA [Concomitant]
  5. GABAPENTIN [Concomitant]
  6. GABAPENTIN [Concomitant]
  7. STRATTERA [Concomitant]
  8. METHOCARBAMOL [Concomitant]
  9. MIRTAZAPINE [Concomitant]
  10. CLONIDINE HCL [Concomitant]
  11. SIMVASTATIN [Concomitant]
  12. METFORMIN [Concomitant]
  13. BENZTROPINE MESYLATE [Concomitant]
  14. LAMOTRIGINE [Concomitant]
  15. PREMARIN [Concomitant]
  16. VIIBRYD [Concomitant]
  17. SERTRALINE HCL [Concomitant]
  18. LATUDA [Concomitant]
  19. AMANTADINE HCL [Concomitant]
  20. NORCO [Concomitant]
  21. NORCO [Concomitant]
  22. IBUPROFEN [Concomitant]
  23. LUNESTA [Concomitant]
  24. OMEPRAZOL [Concomitant]
  25. FENOFIBRATE [Concomitant]

REACTIONS (6)
  - General symptom [Unknown]
  - Arthroscopy [Unknown]
  - Memory impairment [Unknown]
  - Speech disorder [Unknown]
  - Influenza like illness [Unknown]
  - Multiple sclerosis relapse [Recovered/Resolved]
